FAERS Safety Report 21067674 (Version 2)
Quarter: 2022Q3

REPORT INFORMATION
  Report Type: Spontaneous
  Country: AR (occurrence: AR)
  Receive Date: 20220712
  Receipt Date: 20220908
  Transmission Date: 20221026
  Serious: No
  Sender: FDA-Public Use
  Company Number: AR-PFIZER INC-PV202200018192

PATIENT
  Age: 15 Year
  Sex: Male

DRUGS (1)
  1. GENOTROPIN [Suspect]
     Active Substance: SOMATROPIN
     Indication: Short stature
     Dosage: MORE THAN 2 MG, 7 TIMES A WEEK
     Dates: start: 20170723

REACTIONS (2)
  - Poor quality device used [Unknown]
  - Device mechanical issue [Unknown]
